FAERS Safety Report 7430707-3 (Version None)
Quarter: 2011Q2

REPORT INFORMATION
  Report Type: 
  Country: None (occurrence: None)
  Receive Date: 20110419
  Receipt Date: 20110419
  Transmission Date: 20111010
  Serious: Yes (Disabling)
  Sender: FDA-Public Use
  Company Number: None

PATIENT
  Sex: Male
  Weight: 106.5953 kg

DRUGS (2)
  1. ABILIFY [Suspect]
     Indication: DEPRESSION
     Dosage: 1 A DAY PO
     Route: 048
     Dates: start: 20041101, end: 20050101
  2. ABILIFY [Suspect]
     Indication: ANXIETY
     Dosage: 1 A DAY PO
     Route: 048
     Dates: start: 20050701, end: 20050801

REACTIONS (1)
  - TREMOR [None]
